FAERS Safety Report 10932805 (Version 1)
Quarter: 2015Q1

REPORT INFORMATION
  Report Type: Spontaneous
  Country: US (occurrence: None)
  Receive Date: 20150319
  Receipt Date: 20150319
  Transmission Date: 20150721
  Serious: Yes (Life-Threatening, Hospitalization)
  Sender: FDA-Public Use
  Company Number: None

PATIENT
  Age: 87 Year
  Sex: Male

DRUGS (18)
  1. ELIQUIS [Suspect]
     Active Substance: APIXABAN
     Indication: ATRIAL FIBRILLATION
     Dosage: 1 TAB 2XDAY (EACH 12 HRS)
     Route: 048
     Dates: start: 20140415, end: 20141124
  2. ELIQUIS [Suspect]
     Active Substance: APIXABAN
     Indication: CEREBROVASCULAR ACCIDENT PROPHYLAXIS
     Dosage: 1 TAB 2XDAY (EACH 12 HRS)
     Route: 048
     Dates: start: 20140415, end: 20141124
  3. LUMIGAN [Concomitant]
     Active Substance: BIMATOPROST
  4. ESCITALOPRAM [Concomitant]
     Active Substance: ESCITALOPRAM OXALATE
  5. ASPIRIN. [Concomitant]
     Active Substance: ASPIRIN
  6. D3 [Concomitant]
     Active Substance: 25-HYDROXYCHOLECALCIFEROL, 5-TRANS-
  7. PRILOSEC [Concomitant]
     Active Substance: OMEPRAZOLE MAGNESIUM
  8. CARVEDILOL. [Concomitant]
     Active Substance: CARVEDILOL
  9. MULTIVITAMIN [Concomitant]
     Active Substance: VITAMINS
  10. ELIQUIS [Suspect]
     Active Substance: APIXABAN
     Indication: ANTICOAGULANT THERAPY
     Dosage: 1 TAB 2XDAY (EACH 12 HRS)
     Route: 048
     Dates: start: 20140415, end: 20141124
  11. SIMBRINZA [Concomitant]
     Active Substance: BRIMONIDINE TARTRATE\BRINZOLAMIDE
  12. NOVALOG MIX 70/30 [Concomitant]
  13. LASIX [Concomitant]
     Active Substance: FUROSEMIDE
  14. LOSARTAN [Concomitant]
     Active Substance: LOSARTAN
  15. RANEXA [Concomitant]
     Active Substance: RANOLAZINE
  16. IRON [Concomitant]
     Active Substance: IRON
  17. LIPITOR [Concomitant]
     Active Substance: ATORVASTATIN CALCIUM
  18. CALCITROL [Concomitant]
     Active Substance: CALCITRIOL

REACTIONS (4)
  - Dyspnoea [None]
  - Gait disturbance [None]
  - Asthenia [None]
  - Anaemia [None]

NARRATIVE: CASE EVENT DATE: 20141123
